FAERS Safety Report 15739435 (Version 1)
Quarter: 2018Q4

REPORT INFORMATION
  Report Type: Spontaneous
  Country: US (occurrence: US)
  Receive Date: 20181218
  Receipt Date: 20181218
  Transmission Date: 20190205
  Serious: Yes (Hospitalization)
  Sender: FDA-Public Use
  Company Number: None

PATIENT
  Age: 69 Year
  Sex: Male
  Weight: 65.7 kg

DRUGS (8)
  1. KYPROLIS [Suspect]
     Active Substance: CARFILZOMIB
     Indication: PLASMA CELL MYELOMA
     Dosage: ?          OTHER FREQUENCY:6 DAYS PER 28-DAY;?
     Route: 042
     Dates: start: 20181108
  2. POMALYST [Concomitant]
     Active Substance: POMALIDOMIDE
  3. NPLATE [Suspect]
     Active Substance: ROMIPLOSTIM
     Indication: PLASMA CELL MYELOMA
     Dosage: ?          OTHER FREQUENCY:ONCE WEEKLY;?
     Route: 058
     Dates: start: 20181112
  4. NOVOLOG [Concomitant]
     Active Substance: INSULIN ASPART
  5. GRANISETRON [Concomitant]
     Active Substance: GRANISETRON
  6. FAMOTIDINE. [Concomitant]
     Active Substance: FAMOTIDINE
  7. DARZALEX [Concomitant]
     Active Substance: DARATUMUMAB
  8. DEXAMETHASONE. [Concomitant]
     Active Substance: DEXAMETHASONE

REACTIONS (1)
  - Hospice care [None]
